FAERS Safety Report 5759169-9 (Version None)
Quarter: 2008Q2

REPORT INFORMATION
  Report Type: 
  Country: None (occurrence: None)
  Receive Date: 20080602
  Receipt Date: 20080522
  Transmission Date: 20081010
  Serious: Yes (Death)
  Sender: FDA-Public Use
  Company Number: 2008JP002417

PATIENT
  Age: 59 Year
  Sex: Male

DRUGS (4)
  1. TACROLIMUS [Suspect]
     Indication: STEM CELL TRANSPLANT
     Dosage: 0.03 MG/KG, CONTINUOUS, IV NOS
     Route: 042
  2. NEUPOGEN [Concomitant]
  3. METHOTREXATE [Concomitant]
  4. MYCOPHEOLATE MOFETIL (MCOPHENOLATE MOFETIL) [Concomitant]

REACTIONS (2)
  - CYTOMEGALOVIRUS ANTIGEN POSITIVE [None]
  - ESCHERICHIA SEPSIS [None]
